FAERS Safety Report 17961433 (Version 2)
Quarter: 2020Q3

REPORT INFORMATION
  Report Type: Spontaneous
  Country: US (occurrence: US)
  Receive Date: 20200630
  Receipt Date: 20200713
  Transmission Date: 20201103
  Serious: No
  Sender: FDA-Public Use
  Company Number: US-AMGEN-USASP2020102011

PATIENT
  Age: 58 Year
  Sex: Female

DRUGS (9)
  1. FOLIC ACID. [Concomitant]
     Active Substance: FOLIC ACID
  2. METHOTREXATE. [Concomitant]
     Active Substance: METHOTREXATE
  3. OTEZLA [Suspect]
     Active Substance: APREMILAST
     Indication: RHEUMATOID ARTHRITIS
     Dosage: 30 MILLIGRAM
     Route: 048
  4. PROTONIX [OMEPRAZOLE] [Concomitant]
     Active Substance: OMEPRAZOLE
  5. CRESTOR [Concomitant]
     Active Substance: ROSUVASTATIN CALCIUM
  6. BUDESONIDE. [Concomitant]
     Active Substance: BUDESONIDE
  7. OTEZLA [Suspect]
     Active Substance: APREMILAST
     Indication: LICHEN PLANUS
  8. ATENOLOL. [Concomitant]
     Active Substance: ATENOLOL
  9. ORENCIA [Concomitant]
     Active Substance: ABATACEPT

REACTIONS (4)
  - Lichen planus [Unknown]
  - Oesophagitis [Unknown]
  - Mouth ulceration [Unknown]
  - Off label use [Unknown]
